FAERS Safety Report 10595094 (Version 2)
Quarter: 2014Q4

REPORT INFORMATION
  Report Type: Spontaneous
  Country: US (occurrence: None)
  Receive Date: 20141118
  Receipt Date: 20141209
  Transmission Date: 20150529
  Serious: Yes (Death)
  Sender: FDA-Public Use
  Company Number: 2014-US-014687

PATIENT
  Age: 58 Year
  Sex: Male

DRUGS (1)
  1. XYREM [Suspect]
     Active Substance: SODIUM OXYBATE
     Indication: INSOMNIA
     Route: 048
     Dates: start: 201006, end: 201006

REACTIONS (4)
  - Off label use [None]
  - Subdural haematoma [None]
  - Death [None]
  - Craniocerebral injury [None]

NARRATIVE: CASE EVENT DATE: 2014
